FAERS Safety Report 8797219 (Version 1)
Quarter: 2012Q4

REPORT INFORMATION
  Report Type: 
  Country: US (occurrence: US)
  Receive Date: 20120919
  Receipt Date: 20120919
  Transmission Date: 20130627
  Serious: No
  Sender: FDA-Public Use
  Company Number: US-ASTRAZENECA-2011SE42450

PATIENT
  Age: 46 Year
  Sex: Female
  Weight: 76.2 kg

DRUGS (11)
  1. SEROQUEL XR [Suspect]
     Indication: BIPOLAR DISORDER
     Route: 048
     Dates: start: 2010
  2. RAMIPRIL [Suspect]
     Route: 048
  3. VICTOSA [Concomitant]
  4. ATIVAN [Concomitant]
  5. ACIPHEX [Concomitant]
     Route: 048
  6. ADVAIR [Concomitant]
     Dosage: 250-50 MCG, 1 PUFF BID
  7. CHLORTHALIDONE [Concomitant]
     Indication: OEDEMA
     Route: 048
  8. CHLORTHALIDONE [Concomitant]
     Indication: OEDEMA
     Route: 048
  9. PROZAC [Concomitant]
     Route: 048
  10. XOPENEX HFA [Concomitant]
     Indication: COUGH
     Dosage: 2 PUFFS UPTO TID
  11. XOPENEX HFA [Concomitant]
     Indication: COUGH
     Dosage: PRN

REACTIONS (2)
  - Pneumonia [Recovered/Resolved]
  - Blood pressure abnormal [Unknown]
